FAERS Safety Report 11656026 (Version 1)
Quarter: 2015Q4

REPORT INFORMATION
  Report Type: Spontaneous
  Country: US (occurrence: US)
  Receive Date: 20151023
  Receipt Date: 20151023
  Transmission Date: 20160304
  Serious: Yes (Other)
  Sender: FDA-Public Use
  Company Number: US-HORIZON-PRE-0184-2015

PATIENT
  Age: 39 Year
  Sex: Female

DRUGS (1)
  1. PREDNISONE. [Suspect]
     Active Substance: PREDNISONE
     Indication: ASTHMA
     Dosage: 60 MG DAILY FOR 1 WEEK, REDUCED BY 20 MG EVERY 3 DAYS THEREAFTER
     Route: 048

REACTIONS (1)
  - Porokeratosis [Recovering/Resolving]
